FAERS Safety Report 9769010 (Version 1)
Quarter: 2013Q4

REPORT INFORMATION
  Report Type: Spontaneous
  Country: US (occurrence: None)
  Receive Date: 20131217
  Receipt Date: 20131217
  Transmission Date: 20140711
  Serious: Yes (Other)
  Sender: FDA-Public Use
  Company Number: None

PATIENT
  Age: 31 Year
  Sex: Female
  Weight: 56.7 kg

DRUGS (2)
  1. DEXTROMETHORPHAN\GUAIFENACIN [Suspect]
  2. WELLBUTRIN XL [Suspect]

REACTIONS (6)
  - Toxicity to various agents [None]
  - Nausea [None]
  - Vomiting [None]
  - Dysphoria [None]
  - Respiratory rate decreased [None]
  - Mydriasis [None]
